FAERS Safety Report 8566704 (Version 3)
Quarter: 2014Q3

REPORT INFORMATION
  Report Type: Report from Study
  Country: DE (occurrence: DE)
  Receive Date: 20120517
  Receipt Date: 20140725
  Transmission Date: 20150326
  Serious: Yes (Hospitalization, Congenital Anomaly, Other)
  Sender: FDA-Public Use
  Company Number: DE-AMGEN-DEUCT2012030085

PATIENT
  Age: 2 Day

DRUGS (1)
  1. ETANERCEPT [Suspect]
     Active Substance: ETANERCEPT
     Indication: EXPOSURE DURING PREGNANCY
     Dosage: 25 MG, 2 TIMES/WK
     Route: 064
     Dates: start: 20080131

REACTIONS (2)
  - Heart disease congenital [Recovering/Resolving]
  - Exposure via father [Recovering/Resolving]

NARRATIVE: CASE EVENT DATE: 201010
